FAERS Safety Report 4330054-2 (Version None)
Quarter: 2004Q1

REPORT INFORMATION
  Report Type: 
  Country: None (occurrence: None)
  Receive Date: 20040329
  Receipt Date: 20040319
  Transmission Date: 20041129
  Serious: Yes (Life-Threatening)
  Sender: FDA-Public Use
  Company Number: HQWYE719410MAR04

PATIENT
  Age: 37 Year
  Sex: Male

DRUGS (13)
  1. GEMTUZUMAB OZOGAMICIN (GEMTUZUMAB OZOGAMICIN, INJECTION) [Suspect]
     Indication: ACUTE MYELOID LEUKAEMIA
     Dosage: 18 MG 1X PER 1 DAY; INTRAVENOUS
     Route: 042
     Dates: start: 20040209, end: 20040209
  2. GEMTUZUMAB OZOGAMICIN (GEMTUZUMAB OZOGAMICIN, INJECTION) [Suspect]
     Indication: ACUTE MYELOID LEUKAEMIA
     Dosage: 18 MG 1X PER 1 DAY; INTRAVENOUS
     Route: 042
     Dates: start: 20040224, end: 20040224
  3. LOSEC (OMEPRAZOLE,) [Suspect]
     Indication: DYSPEPSIA
     Dosage: 20 MG/ OD
  4. SODIUM ACID PHOSPHATE (SODIUM PHOSPHATE MONOBASIC) [Concomitant]
  5. HYDROMORPHONE HCL [Concomitant]
  6. CODEINE (CODEINE) [Concomitant]
  7. MAGNESIUM (MAGNESIUM) [Concomitant]
  8. POTASSIUM (POTASSIUM) [Concomitant]
  9. PHOSPHORUS (PHOSPHORUS) [Concomitant]
  10. NYSTATIN [Concomitant]
  11. DIPHENHYDRAMINE HCL [Concomitant]
  12. DOCUSATE (DOCUSATE) [Concomitant]
  13. METOCLOPRAMIDE [Concomitant]

REACTIONS (2)
  - RHABDOMYOLYSIS [None]
  - SEPSIS [None]
